FAERS Safety Report 11755594 (Version 1)
Quarter: 2015Q4

REPORT INFORMATION
  Report Type: Spontaneous
  Country: US (occurrence: None)
  Receive Date: 20151118
  Receipt Date: 20151118
  Transmission Date: 20160304
  Serious: Yes (Life-Threatening, Disabling)
  Sender: FDA-Public Use
  Company Number: None

PATIENT
  Age: 47 Year
  Sex: Male
  Weight: 90.72 kg

DRUGS (7)
  1. NAPROXEN. [Concomitant]
     Active Substance: NAPROXEN
  2. DIVALPROEX [Suspect]
     Active Substance: DIVALPROEX SODIUM
     Indication: INTERVERTEBRAL DISC PROTRUSION
     Dosage: 1 PILL AT BEDTIME TAKEN BY MOUTH
     Route: 048
     Dates: start: 20151102, end: 20151102
  3. TRAZODONE HYDROCHLORIDE. [Concomitant]
     Active Substance: TRAZODONE HYDROCHLORIDE
  4. OMEPRAZOLE. [Concomitant]
     Active Substance: OMEPRAZOLE
  5. DIVALPROEX [Suspect]
     Active Substance: DIVALPROEX SODIUM
     Indication: NIGHTMARE
     Dosage: 1 PILL AT BEDTIME TAKEN BY MOUTH
     Route: 048
     Dates: start: 20151102, end: 20151102
  6. LEVOTHYROXINE. [Concomitant]
     Active Substance: LEVOTHYROXINE
  7. DIVALPROEX [Suspect]
     Active Substance: DIVALPROEX SODIUM
     Indication: INSOMNIA
     Dosage: 1 PILL AT BEDTIME TAKEN BY MOUTH
     Route: 048
     Dates: start: 20151102, end: 20151102

REACTIONS (10)
  - Hunger [None]
  - Suicidal ideation [None]
  - Anger [None]
  - Headache [None]
  - Vision blurred [None]
  - Diplopia [None]
  - Chest pain [None]
  - Hallucination [None]
  - Vertigo [None]
  - Drug prescribing error [None]

NARRATIVE: CASE EVENT DATE: 20151102
